FAERS Safety Report 9788445 (Version 1)
Quarter: 2013Q4

REPORT INFORMATION
  Report Type: Spontaneous
  Country: CH (occurrence: CH)
  Receive Date: 20131230
  Receipt Date: 20131230
  Transmission Date: 20140711
  Serious: Yes (Hospitalization)
  Sender: FDA-Public Use
  Company Number: CH-PFIZER INC-2013369634

PATIENT
  Age: 35 Year
  Sex: Female

DRUGS (2)
  1. PANTOZOL [Suspect]
     Dosage: 40 MG, 1X/DAY
     Route: 048
     Dates: start: 20131025, end: 20131025
  2. ECOFENAC [Suspect]
     Dosage: 75 MG, 1X/DAY
     Route: 048
     Dates: start: 20131024, end: 20131025

REACTIONS (5)
  - Hypotension [Recovered/Resolved]
  - Hypersensitivity [Recovered/Resolved]
  - Urticaria [Recovered/Resolved]
  - Pruritus [Recovered/Resolved]
  - Agitation [Recovered/Resolved]
